FAERS Safety Report 4408777-6 (Version None)
Quarter: 2004Q3

REPORT INFORMATION
  Report Type: 
  Country: None (occurrence: None)
  Receive Date: 20040727
  Receipt Date: 20040405
  Transmission Date: 20050211
  Serious: No
  Sender: FDA-Public Use
  Company Number: US-GLAXOSMITHKLINE-A0506379A

PATIENT
  Sex: Male

DRUGS (4)
  1. LEXIVA [Suspect]
     Indication: HIV INFECTION
     Dosage: 1400MG PER DAY
     Route: 048
     Dates: start: 20040211, end: 20040324
  2. RITONAVIR [Concomitant]
  3. EPIVIR [Concomitant]
  4. VIREAD [Concomitant]

REACTIONS (1)
  - BLOOD GLUCOSE INCREASED [None]
